FAERS Safety Report 25244970 (Version 1)
Quarter: 2025Q2

REPORT INFORMATION
  Report Type: Spontaneous
  Country: FR (occurrence: FR)
  Receive Date: 20250428
  Receipt Date: 20250428
  Transmission Date: 20250717
  Serious: Yes (Hospitalization)
  Sender: MYLAN
  Company Number: None

PATIENT
  Age: 59 Year
  Sex: Female
  Weight: 80 kg

DRUGS (72)
  1. LANSOPRAZOLE [Suspect]
     Active Substance: LANSOPRAZOLE
     Indication: Gastrooesophageal reflux disease
     Dates: start: 20250223, end: 20250304
  2. LANSOPRAZOLE [Suspect]
     Active Substance: LANSOPRAZOLE
     Route: 065
     Dates: start: 20250223, end: 20250304
  3. LANSOPRAZOLE [Suspect]
     Active Substance: LANSOPRAZOLE
     Route: 065
     Dates: start: 20250223, end: 20250304
  4. LANSOPRAZOLE [Suspect]
     Active Substance: LANSOPRAZOLE
     Dates: start: 20250223, end: 20250304
  5. PANTOPRAZOLE [Suspect]
     Active Substance: PANTOPRAZOLE
     Indication: Gastrooesophageal reflux disease
     Dates: start: 20250310, end: 20250318
  6. PANTOPRAZOLE [Suspect]
     Active Substance: PANTOPRAZOLE
     Route: 065
     Dates: start: 20250310, end: 20250318
  7. PANTOPRAZOLE [Suspect]
     Active Substance: PANTOPRAZOLE
     Route: 065
     Dates: start: 20250310, end: 20250318
  8. PANTOPRAZOLE [Suspect]
     Active Substance: PANTOPRAZOLE
     Dates: start: 20250310, end: 20250318
  9. PIPERACILLIN [Suspect]
     Active Substance: PIPERACILLIN
     Indication: Infection
     Dates: start: 20250222, end: 20250315
  10. PIPERACILLIN [Suspect]
     Active Substance: PIPERACILLIN
     Route: 042
     Dates: start: 20250222, end: 20250315
  11. PIPERACILLIN [Suspect]
     Active Substance: PIPERACILLIN
     Route: 042
     Dates: start: 20250222, end: 20250315
  12. PIPERACILLIN [Suspect]
     Active Substance: PIPERACILLIN
     Dates: start: 20250222, end: 20250315
  13. CASPOFUNGIN [Suspect]
     Active Substance: CASPOFUNGIN
     Indication: Fungal infection
     Dates: start: 20250224, end: 20250320
  14. CASPOFUNGIN [Suspect]
     Active Substance: CASPOFUNGIN
     Route: 042
     Dates: start: 20250224, end: 20250320
  15. CASPOFUNGIN [Suspect]
     Active Substance: CASPOFUNGIN
     Route: 042
     Dates: start: 20250224, end: 20250320
  16. CASPOFUNGIN [Suspect]
     Active Substance: CASPOFUNGIN
     Dates: start: 20250224, end: 20250320
  17. AMOXICILLIN [Suspect]
     Active Substance: AMOXICILLIN
     Indication: Infection
     Dates: start: 20250316, end: 20250318
  18. AMOXICILLIN [Suspect]
     Active Substance: AMOXICILLIN
     Route: 065
     Dates: start: 20250316, end: 20250318
  19. AMOXICILLIN [Suspect]
     Active Substance: AMOXICILLIN
     Route: 065
     Dates: start: 20250316, end: 20250318
  20. AMOXICILLIN [Suspect]
     Active Substance: AMOXICILLIN
     Dates: start: 20250316, end: 20250318
  21. TAZOBACTAM [Suspect]
     Active Substance: TAZOBACTAM
     Indication: Infection
     Dates: start: 20250222, end: 20250315
  22. TAZOBACTAM [Suspect]
     Active Substance: TAZOBACTAM
     Route: 042
     Dates: start: 20250222, end: 20250315
  23. TAZOBACTAM [Suspect]
     Active Substance: TAZOBACTAM
     Route: 042
     Dates: start: 20250222, end: 20250315
  24. TAZOBACTAM [Suspect]
     Active Substance: TAZOBACTAM
     Dates: start: 20250222, end: 20250315
  25. METRONIDAZOLE [Suspect]
     Active Substance: METRONIDAZOLE
     Indication: Infection
     Dates: start: 20250227, end: 20250315
  26. METRONIDAZOLE [Suspect]
     Active Substance: METRONIDAZOLE
     Route: 065
     Dates: start: 20250227, end: 20250315
  27. METRONIDAZOLE [Suspect]
     Active Substance: METRONIDAZOLE
     Route: 065
     Dates: start: 20250227, end: 20250315
  28. METRONIDAZOLE [Suspect]
     Active Substance: METRONIDAZOLE
     Dates: start: 20250227, end: 20250315
  29. CLAVULANIC ACID [Suspect]
     Active Substance: CLAVULANIC ACID
     Indication: Infection
     Dates: start: 20250316, end: 20250318
  30. CLAVULANIC ACID [Suspect]
     Active Substance: CLAVULANIC ACID
     Route: 065
     Dates: start: 20250316, end: 20250318
  31. CLAVULANIC ACID [Suspect]
     Active Substance: CLAVULANIC ACID
     Route: 065
     Dates: start: 20250316, end: 20250318
  32. CLAVULANIC ACID [Suspect]
     Active Substance: CLAVULANIC ACID
     Dates: start: 20250316, end: 20250318
  33. CHOLESTYRAMINE [Concomitant]
     Active Substance: CHOLESTYRAMINE
  34. CHOLESTYRAMINE [Concomitant]
     Active Substance: CHOLESTYRAMINE
     Route: 065
  35. CHOLESTYRAMINE [Concomitant]
     Active Substance: CHOLESTYRAMINE
     Route: 065
  36. CHOLESTYRAMINE [Concomitant]
     Active Substance: CHOLESTYRAMINE
  37. LOPERAMIDE HYDROCHLORIDE [Concomitant]
     Active Substance: LOPERAMIDE HYDROCHLORIDE
  38. LOPERAMIDE HYDROCHLORIDE [Concomitant]
     Active Substance: LOPERAMIDE HYDROCHLORIDE
     Route: 065
  39. LOPERAMIDE HYDROCHLORIDE [Concomitant]
     Active Substance: LOPERAMIDE HYDROCHLORIDE
     Route: 065
  40. LOPERAMIDE HYDROCHLORIDE [Concomitant]
     Active Substance: LOPERAMIDE HYDROCHLORIDE
  41. ACETAMINOPHEN [Concomitant]
     Active Substance: ACETAMINOPHEN
  42. ACETAMINOPHEN [Concomitant]
     Active Substance: ACETAMINOPHEN
     Route: 065
  43. ACETAMINOPHEN [Concomitant]
     Active Substance: ACETAMINOPHEN
     Route: 065
  44. ACETAMINOPHEN [Concomitant]
     Active Substance: ACETAMINOPHEN
  45. PHLOROGLUCINOL [Concomitant]
     Active Substance: PHLOROGLUCINOL
  46. PHLOROGLUCINOL [Concomitant]
     Active Substance: PHLOROGLUCINOL
     Route: 065
  47. PHLOROGLUCINOL [Concomitant]
     Active Substance: PHLOROGLUCINOL
     Route: 065
  48. PHLOROGLUCINOL [Concomitant]
     Active Substance: PHLOROGLUCINOL
  49. LOVENOX [Concomitant]
     Active Substance: ENOXAPARIN SODIUM
  50. LOVENOX [Concomitant]
     Active Substance: ENOXAPARIN SODIUM
     Route: 065
  51. LOVENOX [Concomitant]
     Active Substance: ENOXAPARIN SODIUM
     Route: 065
  52. LOVENOX [Concomitant]
     Active Substance: ENOXAPARIN SODIUM
  53. TINZAPARIN SODIUM [Concomitant]
     Active Substance: TINZAPARIN SODIUM
  54. TINZAPARIN SODIUM [Concomitant]
     Active Substance: TINZAPARIN SODIUM
     Route: 065
  55. TINZAPARIN SODIUM [Concomitant]
     Active Substance: TINZAPARIN SODIUM
     Route: 065
  56. TINZAPARIN SODIUM [Concomitant]
     Active Substance: TINZAPARIN SODIUM
  57. PHOCYTAN [Concomitant]
     Active Substance: .ALPHA.-GLUCOSE-1-PHOSPHATE DISODIUM TETRAHYDRATE
  58. PHOCYTAN [Concomitant]
     Active Substance: .ALPHA.-GLUCOSE-1-PHOSPHATE DISODIUM TETRAHYDRATE
     Route: 065
  59. PHOCYTAN [Concomitant]
     Active Substance: .ALPHA.-GLUCOSE-1-PHOSPHATE DISODIUM TETRAHYDRATE
     Route: 065
  60. PHOCYTAN [Concomitant]
     Active Substance: .ALPHA.-GLUCOSE-1-PHOSPHATE DISODIUM TETRAHYDRATE
  61. LANREOTIDE ACETATE [Concomitant]
     Active Substance: LANREOTIDE ACETATE
  62. LANREOTIDE ACETATE [Concomitant]
     Active Substance: LANREOTIDE ACETATE
     Route: 065
  63. LANREOTIDE ACETATE [Concomitant]
     Active Substance: LANREOTIDE ACETATE
     Route: 065
  64. LANREOTIDE ACETATE [Concomitant]
     Active Substance: LANREOTIDE ACETATE
  65. POTASSIUM CHLORIDE [Concomitant]
     Active Substance: POTASSIUM CHLORIDE
  66. POTASSIUM CHLORIDE [Concomitant]
     Active Substance: POTASSIUM CHLORIDE
     Route: 065
  67. POTASSIUM CHLORIDE [Concomitant]
     Active Substance: POTASSIUM CHLORIDE
     Route: 065
  68. POTASSIUM CHLORIDE [Concomitant]
     Active Substance: POTASSIUM CHLORIDE
  69. OCTREOTIDE [Concomitant]
     Active Substance: OCTREOTIDE
  70. OCTREOTIDE [Concomitant]
     Active Substance: OCTREOTIDE
     Route: 065
  71. OCTREOTIDE [Concomitant]
     Active Substance: OCTREOTIDE
     Route: 065
  72. OCTREOTIDE [Concomitant]
     Active Substance: OCTREOTIDE

REACTIONS (1)
  - Toxic skin eruption [Not Recovered/Not Resolved]

NARRATIVE: CASE EVENT DATE: 20250317
